FAERS Safety Report 4835969-4 (Version None)
Quarter: 2005Q4

REPORT INFORMATION
  Report Type: 
  Country: None (occurrence: None)
  Receive Date: 20051123
  Receipt Date: 20051115
  Transmission Date: 20060501
  Serious: Yes (Life-Threatening, Hospitalization, Disabling)
  Sender: FDA-Public Use
  Company Number: US-JNJFOC-20030706209

PATIENT
  Sex: Female
  Weight: 62.14 kg

DRUGS (7)
  1. INFLIXIMAB [Suspect]
     Dosage: SIX (6) INFLIXIMAB INFUSIONS PRIOR TO TREAT REGISTRATION
     Route: 042
  2. INFLIXIMAB [Suspect]
     Route: 042
  3. INFLIXIMAB [Suspect]
     Route: 042
  4. INFLIXIMAB [Suspect]
     Indication: CROHN'S DISEASE
     Route: 042
  5. MERCAPTOPURINE [Concomitant]
  6. ACETAMINOPHEN [Concomitant]
  7. ANTI-HISTAMINE TAB [Concomitant]

REACTIONS (4)
  - ASTHENIA [None]
  - CERVICAL VERTEBRAL FRACTURE [None]
  - DIZZINESS [None]
  - FALL [None]
